FAERS Safety Report 8145101-X (Version None)
Quarter: 2012Q1

REPORT INFORMATION
  Report Type: 
  Country: None (occurrence: None)
  Receive Date: 20120217
  Receipt Date: 20120213
  Transmission Date: 20120608
  Serious: Yes (Hospitalization)
  Sender: FDA-Public Use
  Company Number: PHEH2012US003831

PATIENT
  Sex: Male

DRUGS (1)
  1. TOBI [Suspect]
     Indication: CYSTIC FIBROSIS
     Dosage: 300 MG, BID, EVERY 28 DAYS
     Dates: start: 20100101

REACTIONS (4)
  - SINUSITIS [None]
  - MUSCULAR WEAKNESS [None]
  - PYREXIA [None]
  - CYTOMEGALOVIRUS INFECTION [None]
